FAERS Safety Report 7060410-3 (Version None)
Quarter: 2010Q4

REPORT INFORMATION
  Report Type: 
  Country: None (occurrence: None)
  Receive Date: 20101025
  Receipt Date: 20101018
  Transmission Date: 20110411
  Serious: Yes (Other)
  Sender: FDA-Public Use
  Company Number: US-WYE-H18205210

PATIENT
  Sex: Female
  Weight: 74 kg

DRUGS (3)
  1. PREMPRO [Suspect]
     Indication: MENOPAUSE
     Route: 048
     Dates: end: 20101001
  2. PREMPRO [Suspect]
     Indication: CARDIAC DISORDER
     Dosage: HALF OF A 0.3 MG TABLET DAILY
     Route: 048
     Dates: start: 20101001
  3. PREMPRO [Suspect]
     Indication: PROPHYLAXIS

REACTIONS (7)
  - CARDIOMYOPATHY [None]
  - DRUG INEFFECTIVE [None]
  - HOT FLUSH [None]
  - INSOMNIA [None]
  - MIDDLE INSOMNIA [None]
  - THERAPEUTIC RESPONSE UNEXPECTED [None]
  - WRONG TECHNIQUE IN DRUG USAGE PROCESS [None]
